FAERS Safety Report 21020715 (Version 2)
Quarter: 2022Q3

REPORT INFORMATION
  Report Type: Spontaneous
  Country: US (occurrence: US)
  Receive Date: 20220629
  Receipt Date: 20220910
  Transmission Date: 20221027
  Serious: Yes (Other)
  Sender: FDA-Public Use
  Company Number: US-JNJFOC-20220650085

PATIENT
  Age: 5 Decade
  Sex: Female

DRUGS (1)
  1. ELMIRON [Suspect]
     Active Substance: PENTOSAN POLYSULFATE SODIUM
     Indication: Cystitis interstitial
     Route: 048
     Dates: start: 1996, end: 202111

REACTIONS (3)
  - Macular degeneration [Unknown]
  - Retinal degeneration [Unknown]
  - Retinitis pigmentosa [Not Recovered/Not Resolved]

NARRATIVE: CASE EVENT DATE: 20150101
